FAERS Safety Report 25944663 (Version 2)
Quarter: 2025Q4

REPORT INFORMATION
  Report Type: Spontaneous
  Country: US (occurrence: US)
  Receive Date: 20251021
  Receipt Date: 20251105
  Transmission Date: 20260117
  Serious: Yes (Other)
  Sender: ORGANON
  Company Number: US-ORGANON-O2510USA001511

PATIENT
  Sex: Female

DRUGS (1)
  1. NEXPLANON [Suspect]
     Active Substance: ETONOGESTREL
     Indication: Contraception
     Dosage: 1 IMPLANT, 68 MG

REACTIONS (3)
  - Loss of consciousness [Unknown]
  - Cerebral haemorrhage [Unknown]
  - Alcohol use [Unknown]

NARRATIVE: CASE EVENT DATE: 20250101
